FAERS Safety Report 18856684 (Version 1)
Quarter: 2021Q1

REPORT INFORMATION
  Report Type: Report from Study
  Country: ES (occurrence: ES)
  Receive Date: 20210207
  Receipt Date: 20210207
  Transmission Date: 20210420
  Serious: Yes (Other)
  Sender: FDA-Public Use
  Company Number: ES-TAKEDA-ES202025714

PATIENT
  Sex: Female

DRUGS (2)
  1. ICATIBANT [Suspect]
     Active Substance: ICATIBANT ACETATE
     Indication: HEREDITARY ANGIOEDEMA
     Route: 065
  2. ICATIBANT [Suspect]
     Active Substance: ICATIBANT ACETATE
     Indication: HEREDITARY ANGIOEDEMA
     Route: 065

REACTIONS (2)
  - Exposure during pregnancy [Not Recovered/Not Resolved]
  - Abortion missed [Recovered/Resolved]

NARRATIVE: CASE EVENT DATE: 20170315
